FAERS Safety Report 8484672-0 (Version None)
Quarter: 2012Q3

REPORT INFORMATION
  Report Type: 
  Country: None (occurrence: None)
  Receive Date: 20120703
  Receipt Date: 20120507
  Transmission Date: 20120928
  Serious: Yes (Other)
  Sender: FDA-Public Use
  Company Number: US-TEVA-333192USA

PATIENT
  Sex: Female

DRUGS (1)
  1. NUVIGIL [Suspect]
     Indication: NARCOLEPSY
     Route: 048
     Dates: start: 20110701, end: 20110101

REACTIONS (1)
  - ABORTION SPONTANEOUS [None]
